FAERS Safety Report 5770180-4 (Version None)
Quarter: 2008Q2

REPORT INFORMATION
  Report Type: 
  Country: None (occurrence: None)
  Receive Date: 20080613
  Receipt Date: 20080422
  Transmission Date: 20081010
  Serious: No
  Sender: FDA-Public Use
  Company Number: US-ABBOTT-08P-163-0448663-00

PATIENT
  Sex: Female
  Weight: 56.75 kg

DRUGS (3)
  1. HUMIRA [Suspect]
     Indication: PSORIASIS
     Route: 058
     Dates: start: 20080328, end: 20080328
  2. HUMIRA [Suspect]
     Route: 058
     Dates: start: 20080406
  3. METHOTREXATE [Suspect]
     Indication: PSORIASIS
     Route: 048
     Dates: end: 20080401

REACTIONS (2)
  - ERYTHEMA [None]
  - SKIN BURNING SENSATION [None]
